FAERS Safety Report 23570101 (Version 1)
Quarter: 2024Q1

REPORT INFORMATION
  Report Type: Spontaneous
  Country: US (occurrence: US)
  Receive Date: 20240227
  Receipt Date: 20240227
  Transmission Date: 20240410
  Serious: No
  Sender: FDA-Public Use
  Company Number: US-ALKERMES INC.-ALK-2024-000386

PATIENT
  Age: 60 Year
  Sex: Female
  Weight: 102.04 kg

DRUGS (3)
  1. VIVITROL [Suspect]
     Active Substance: NALTREXONE
     Indication: Alcoholism
     Dosage: 380 MILLIGRAM, QMO
     Route: 030
     Dates: end: 20240204
  2. LYRICA [Concomitant]
     Active Substance: PREGABALIN
     Indication: Product used for unknown indication
     Dosage: UNK
     Route: 065
  3. NEBIVOLOL [Concomitant]
     Active Substance: NEBIVOLOL
     Indication: Product used for unknown indication
     Dosage: 10 MILLIGRAM
     Route: 065

REACTIONS (14)
  - Swollen tongue [Unknown]
  - Swelling face [Unknown]
  - Feeling of body temperature change [Unknown]
  - Pain [Unknown]
  - Dyspnoea [Unknown]
  - Abdominal pain upper [Unknown]
  - Dizziness [Unknown]
  - Chest pain [Unknown]
  - Pain in extremity [Unknown]
  - Decreased appetite [Unknown]
  - Fatigue [Unknown]
  - Somnolence [Unknown]
  - Toothache [Unknown]
  - Headache [Unknown]

NARRATIVE: CASE EVENT DATE: 20240201
